FAERS Safety Report 4437222-X (Version None)
Quarter: 2004Q3

REPORT INFORMATION
  Report Type: 
  Country: None (occurrence: None)
  Receive Date: 20040726
  Receipt Date: 20040503
  Transmission Date: 20050211
  Serious: No
  Sender: FDA-Public Use
  Company Number: USA030229704

PATIENT
  Age: 74 Year
  Sex: Female
  Weight: 42 kg

DRUGS (4)
  1. FORTEO [Suspect]
     Indication: FRACTURE
     Dates: start: 20030206
  2. FORTEO [Suspect]
     Indication: OSTEOPOROSIS
     Dates: start: 20030206
  3. FORTEO [Suspect]
     Indication: PROPHYLAXIS
     Dates: start: 20030206
  4. TOPROL-XL [Concomitant]

REACTIONS (4)
  - EPISTAXIS [None]
  - INJECTION SITE HAEMORRHAGE [None]
  - STOMACH DISCOMFORT [None]
  - THROMBOSIS [None]
